FAERS Safety Report 8405201-3 (Version None)
Quarter: 2012Q2

REPORT INFORMATION
  Report Type: 
  Country: None (occurrence: None)
  Receive Date: 20120603
  Receipt Date: 20120524
  Transmission Date: 20120825
  Serious: Yes (Other)
  Sender: FDA-Public Use
  Company Number: JP-VERTEX PHARMACEUTICALS INC.-AE-2012-007857

PATIENT
  Age: 60 Year
  Sex: Male

DRUGS (10)
  1. TELAVIC (TELAPREVIR) [Suspect]
     Indication: HEPATITIS C
     Route: 048
     Dates: start: 20120411, end: 20120518
  2. ATELEC [Concomitant]
     Route: 048
  3. LEVOTHYROXINE SODIUM [Concomitant]
     Route: 048
  4. BISOPROLOL FUMARATE [Concomitant]
     Route: 048
  5. PEGINTERFERON ALFA-2B [Concomitant]
     Route: 051
     Dates: start: 20120411
  6. RIBAVIRIN [Concomitant]
     Route: 048
     Dates: start: 20120425
  7. ALPRAZOLAM [Concomitant]
     Route: 048
  8. RIBAVIRIN [Concomitant]
     Route: 048
     Dates: start: 20120411
  9. FAMOTIDINE [Concomitant]
     Route: 048
  10. FEBURIC [Concomitant]
     Route: 048

REACTIONS (1)
  - ERYTHEMA [None]
